FAERS Safety Report 5265303-X (Version None)
Quarter: 2007Q1

REPORT INFORMATION
  Report Type: 
  Country: None (occurrence: None)
  Receive Date: 20070314
  Receipt Date: 20070307
  Transmission Date: 20070707
  Serious: Yes (Hospitalization)
  Sender: FDA-Public Use
  Company Number: GB-SANOFI-SYNTHELABO-F01200700293

PATIENT

DRUGS (6)
  1. DOXAZOSIN MESYLATE [Concomitant]
  2. OMEPRAZOLE [Concomitant]
  3. FLUOROURACIL [Suspect]
     Dosage: 400 MG/M2 BOLUS THEN 2400 MG/M2 INFUSION D1-2
     Route: 042
     Dates: start: 20070214, end: 20070215
  4. BEVACIZUMAB [Suspect]
     Route: 042
     Dates: start: 20070214, end: 20070215
  5. OXALIPLATIN [Suspect]
     Indication: COLON CANCER
     Route: 042
     Dates: start: 20070214, end: 20070215
  6. CALCIUM FOLINATE [Suspect]
     Dates: start: 20070214, end: 20070214

REACTIONS (2)
  - CONFUSIONAL STATE [None]
  - NEUTROPENIA [None]
